FAERS Safety Report 8561947-8 (Version None)
Quarter: 2012Q3

REPORT INFORMATION
  Report Type: 
  Country: None (occurrence: None)
  Receive Date: 20120802
  Receipt Date: 20120726
  Transmission Date: 20120928
  Serious: Yes (Hospitalization, Other)
  Sender: FDA-Public Use
  Company Number: GR-BAXTER-2012BAX012544

PATIENT
  Age: 78 Year
  Sex: Female

DRUGS (9)
  1. OMEPRAZOLE [Concomitant]
  2. EXTRANEAL [Suspect]
     Route: 033
  3. EXTRANEAL [Suspect]
  4. PHYSIOSOL IN PLASTIC CONTAINER [Suspect]
  5. LEVOTHYROXINE SODIUM [Concomitant]
     Indication: THYROID DISORDER
  6. PHYSIOSOL IN PLASTIC CONTAINER [Suspect]
  7. PHYSIOSOL IN PLASTIC CONTAINER [Suspect]
     Route: 033
  8. PHYSIOSOL IN PLASTIC CONTAINER [Suspect]
     Route: 033
  9. LEVOTHYROXINE SODIUM [Concomitant]
     Dosage: UNKNOWN

REACTIONS (2)
  - PERITONITIS [None]
  - PYREXIA [None]
